FAERS Safety Report 7320475-8 (Version None)
Quarter: 2011Q1

REPORT INFORMATION
  Report Type: 
  Country: None (occurrence: None)
  Receive Date: 20110228
  Receipt Date: 20110217
  Transmission Date: 20110831
  Serious: Yes (Hospitalization)
  Sender: FDA-Public Use
  Company Number: B0702024A

PATIENT
  Sex: Female

DRUGS (1)
  1. ROSIGLITAZONE MALEATE [Suspect]
     Route: 048

REACTIONS (4)
  - LERICHE SYNDROME [None]
  - HYPERTENSION [None]
  - HYPERLIPIDAEMIA [None]
  - DYSPNOEA [None]
